FAERS Safety Report 18519112 (Version 2)
Quarter: 2020Q4

REPORT INFORMATION
  Report Type: Report from Study
  Country: AR (occurrence: AR)
  Receive Date: 20201118
  Receipt Date: 20201127
  Transmission Date: 20210114
  Serious: Yes (Other)
  Sender: FDA-Public Use
  Company Number: AR-TAKEDA-AR202027212

PATIENT
  Age: 10 Year
  Sex: Male
  Weight: 36 kg

DRUGS (4)
  1. IDURSULFASE [Suspect]
     Active Substance: IDURSULFASE
     Dosage: 3 DOSAGE FORM, 1X/WEEK
     Route: 065
     Dates: start: 20200827
  2. IDURSULFASE [Suspect]
     Active Substance: IDURSULFASE
     Indication: PRODUCT USED FOR UNKNOWN INDICATION
     Dosage: UNK
     Route: 065
  3. IDURSULFASE [Suspect]
     Active Substance: IDURSULFASE
     Dosage: UNK
  4. IDURSULFASE [Suspect]
     Active Substance: IDURSULFASE
     Dosage: 3 DOSAGE FORM, 1X/WEEK
     Route: 050

REACTIONS (8)
  - Dyspnoea [Recovered/Resolved]
  - Product dose omission issue [Recovered/Resolved]
  - Cough [Not Recovered/Not Resolved]
  - COVID-19 [Unknown]
  - Leukopenia [Unknown]
  - Pyrexia [Recovered/Resolved]
  - Pharyngitis [Unknown]
  - Depressed mood [Unknown]

NARRATIVE: CASE EVENT DATE: 20200819
